FAERS Safety Report 8955579 (Version 1)
Quarter: 2012Q4

REPORT INFORMATION
  Report Type: 
  Country: ES (occurrence: ES)
  Receive Date: 20121207
  Receipt Date: 20121207
  Transmission Date: 20130627
  Serious: Yes (Hospitalization)
  Sender: FDA-Public Use
  Company Number: ES-ROCHE-1161507

PATIENT
  Age: 30 Year
  Sex: Male
  Weight: 59 kg

DRUGS (1)
  1. GANCICLOVIR [Suspect]
     Indication: CYTOMEGALOVIRUS INFECTION
     Route: 042

REACTIONS (1)
  - Guillain-Barre syndrome [Recovered/Resolved with Sequelae]
